FAERS Safety Report 13257521 (Version 8)
Quarter: 2019Q2

REPORT INFORMATION
  Report Type: Spontaneous
  Country: IT (occurrence: IT)
  Receive Date: 20170221
  Receipt Date: 20190509
  Transmission Date: 20190711
  Serious: Yes (Hospitalization, Other)
  Sender: FDA-Public Use
  Company Number: IT-MYLANLABS-2017M1010562

PATIENT
  Age: 65 Year
  Sex: Female

DRUGS (14)
  1. AZATHIOPRINE. [Suspect]
     Active Substance: AZATHIOPRINE
     Indication: SJOGREN^S SYNDROME
     Dosage: UNK
     Route: 065
  2. RIBAVIRIN. [Suspect]
     Active Substance: RIBAVIRIN
     Indication: HEPATITIS E
     Dosage: 800 MG, QD
  3. MYCOPHENOLATE MOFETIL. [Suspect]
     Active Substance: MYCOPHENOLATE MOFETIL
     Indication: SJOGREN^S SYNDROME
     Dosage: 2 G, QD
     Route: 065
     Dates: start: 2010
  4. RITUXIMAB. [Suspect]
     Active Substance: RITUXIMAB
     Indication: SJOGREN^S SYNDROME
     Dosage: 2 G, CYCLE
  5. PREDNISONE. [Suspect]
     Active Substance: PREDNISONE
     Indication: CRYOGLOBULINAEMIA
  6. CYCLOPHOSPHAMIDE. [Suspect]
     Active Substance: CYCLOPHOSPHAMIDE
     Indication: SJOGREN^S SYNDROME
     Dosage: UNK
     Route: 048
  7. AZATHIOPRINE. [Suspect]
     Active Substance: AZATHIOPRINE
     Indication: CRYOGLOBULINAEMIA
  8. PREDNISONE. [Suspect]
     Active Substance: PREDNISONE
     Indication: SJOGREN^S SYNDROME
     Dosage: UNK
  9. PREDNISONE. [Suspect]
     Active Substance: PREDNISONE
     Indication: AUTOIMMUNE HEPATITIS
  10. MYCOPHENOLATE MOFETIL. [Suspect]
     Active Substance: MYCOPHENOLATE MOFETIL
     Indication: CRYOGLOBULINAEMIA
  11. RITUXIMAB. [Suspect]
     Active Substance: RITUXIMAB
     Indication: CRYOGLOBULINAEMIA
     Dosage: 2 G, EVERY 6 MONTHS
     Route: 065
     Dates: start: 2010
  12. CICLOSPORIN [Suspect]
     Active Substance: CYCLOSPORINE
     Indication: SJOGREN^S SYNDROME
     Dosage: UNK
     Route: 065
  13. CICLOSPORIN [Suspect]
     Active Substance: CYCLOSPORINE
     Indication: CRYOGLOBULINAEMIA
  14. CYCLOPHOSPHAMIDE. [Suspect]
     Active Substance: CYCLOPHOSPHAMIDE
     Indication: CRYOGLOBULINAEMIA

REACTIONS (4)
  - Hepatitis E [Recovering/Resolving]
  - Product use in unapproved indication [Unknown]
  - Fatigue [Unknown]
  - Anaemia macrocytic [Unknown]
